FAERS Safety Report 19970648 (Version 7)
Quarter: 2023Q2

REPORT INFORMATION
  Report Type: Report from Study
  Country: JP (occurrence: JP)
  Receive Date: 20211019
  Receipt Date: 20230627
  Transmission Date: 20230722
  Serious: Yes (Death, Hospitalization, Other)
  Sender: FDA-Public Use
  Company Number: JP-JNJFOC-A-CH2020-201599

PATIENT
  Age: 13 Year
  Sex: Female
  Weight: 30.7 kg

DRUGS (33)
  1. UPTRAVI [Suspect]
     Active Substance: SELEXIPAG
     Indication: Pulmonary arterial hypertension
     Dosage: 0.48 MG, BID
     Route: 048
     Dates: start: 20180613, end: 20180712
  2. UPTRAVI [Suspect]
     Active Substance: SELEXIPAG
     Dosage: 0.12 MG, BID
     Route: 048
     Dates: start: 20180301, end: 20180405
  3. UPTRAVI [Suspect]
     Active Substance: SELEXIPAG
     Dosage: 0.24 MG, BID
     Route: 048
     Dates: start: 20180406, end: 20180510
  4. UPTRAVI [Suspect]
     Active Substance: SELEXIPAG
     Dosage: 0.36 MG, BID
     Route: 048
     Dates: start: 20180511, end: 20180612
  5. UPTRAVI [Suspect]
     Active Substance: SELEXIPAG
     Dosage: 0.6 MG, BID
     Route: 048
     Dates: start: 20180713, end: 20180913
  6. UPTRAVI [Suspect]
     Active Substance: SELEXIPAG
     Route: 048
     Dates: start: 20190409, end: 20190516
  7. UPTRAVI [Suspect]
     Active Substance: SELEXIPAG
     Route: 048
     Dates: start: 20190517, end: 20190613
  8. UPTRAVI [Suspect]
     Active Substance: SELEXIPAG
     Route: 048
     Dates: start: 20190614, end: 20190718
  9. UPTRAVI [Suspect]
     Active Substance: SELEXIPAG
     Route: 048
     Dates: start: 20200904, end: 20210602
  10. UPTRAVI [Suspect]
     Active Substance: SELEXIPAG
     Route: 048
     Dates: start: 20190719, end: 20190808
  11. UPTRAVI [Suspect]
     Active Substance: SELEXIPAG
     Route: 048
     Dates: start: 20190809, end: 20190912
  12. UPTRAVI [Suspect]
     Active Substance: SELEXIPAG
     Route: 048
     Dates: start: 20190913, end: 20200618
  13. UPTRAVI [Suspect]
     Active Substance: SELEXIPAG
     Route: 048
     Dates: start: 20200619, end: 20200903
  14. UPTRAVI [Suspect]
     Active Substance: SELEXIPAG
     Route: 048
     Dates: start: 20200904, end: 20210602
  15. ADCIRCA [Concomitant]
     Active Substance: TADALAFIL
     Indication: Pulmonary arterial hypertension
     Dosage: 33 MG, QD
     Route: 048
     Dates: start: 20170406, end: 20191004
  16. ADCIRCA [Concomitant]
     Active Substance: TADALAFIL
     Dosage: 33 MG, QD
     Route: 048
     Dates: start: 20191006
  17. OPSUMIT [Concomitant]
     Active Substance: MACITENTAN
     Indication: Pulmonary arterial hypertension
     Dosage: 6.6 MG, QD
     Dates: start: 20170406, end: 20201105
  18. OPSUMIT [Concomitant]
     Active Substance: MACITENTAN
     Dates: start: 20201106
  19. WARFARIN [Concomitant]
     Active Substance: WARFARIN
     Dosage: 3 MG, QD
     Dates: start: 20170812, end: 20180628
  20. WARFARIN [Concomitant]
     Active Substance: WARFARIN
     Dosage: 3 MG, QD
     Dates: start: 20180630, end: 20180704
  21. WARFARIN [Concomitant]
     Active Substance: WARFARIN
     Dosage: 3 MG, QD
     Dates: start: 20180706, end: 20180913
  22. WARFARIN [Concomitant]
     Active Substance: WARFARIN
     Dates: start: 20180914, end: 20191004
  23. WARFARIN [Concomitant]
     Active Substance: WARFARIN
     Dates: start: 20191007
  24. SAMSCA [Concomitant]
     Active Substance: TOLVAPTAN
     Dosage: 10 MG, QD
     Dates: start: 20180213, end: 20191003
  25. SAMSCA [Concomitant]
     Active Substance: TOLVAPTAN
     Dosage: 10 MG, QD
     Dates: start: 20191007
  26. FUROSEMIDE [Concomitant]
     Active Substance: FUROSEMIDE
     Dosage: 75 MG, QD
     Dates: start: 20150421, end: 20191003
  27. FUROSEMIDE [Concomitant]
     Active Substance: FUROSEMIDE
     Dosage: 75 MG, QD
     Dates: start: 20191007
  28. SPIRONOLACTONE [Concomitant]
     Active Substance: SPIRONOLACTONE
     Dosage: 75 MG, QD
     Dates: start: 20150421, end: 20191003
  29. SPIRONOLACTONE [Concomitant]
     Active Substance: SPIRONOLACTONE
     Dosage: 75 MG, QD
     Dates: start: 20191007
  30. ENALAPRIL MALEATE [Concomitant]
     Active Substance: ENALAPRIL MALEATE
     Dosage: 6.6 MG, QD
     Dates: start: 20170406, end: 20191004
  31. ENALAPRIL MALEATE [Concomitant]
     Active Substance: ENALAPRIL MALEATE
     Dosage: 6.6 MG, QD
     Dates: start: 20191011, end: 20201105
  32. ASPIRIN [Concomitant]
     Active Substance: ASPIRIN
     Dosage: 165 MG, QD
     Dates: start: 20170407
  33. ENALAPRIL MALEATE [Concomitant]
     Active Substance: ENALAPRIL MALEATE
     Dates: start: 20201106

REACTIONS (21)
  - Circulatory collapse [Fatal]
  - Hyperthyroidism [Recovered/Resolved]
  - Cardiac failure [Not Recovered/Not Resolved]
  - Respiratory failure [Not Recovered/Not Resolved]
  - Renal impairment [Not Recovered/Not Resolved]
  - Protein-losing gastroenteropathy [Unknown]
  - Sepsis [Not Recovered/Not Resolved]
  - Headache [Recovered/Resolved]
  - Vomiting [Recovered/Resolved]
  - Diarrhoea [Recovered/Resolved]
  - Haemorrhage [Not Recovered/Not Resolved]
  - Pertussis [Recovered/Resolved]
  - Thyroiditis [Not Recovered/Not Resolved]
  - Pleural effusion [Not Recovered/Not Resolved]
  - Infection [Not Recovered/Not Resolved]
  - Oedema [Not Recovered/Not Resolved]
  - Pyrexia [Not Recovered/Not Resolved]
  - Tachypnoea [Not Recovered/Not Resolved]
  - Hypotension [Recovered/Resolved]
  - Platelet count decreased [Recovering/Resolving]
  - Brain natriuretic peptide increased [Recovering/Resolving]

NARRATIVE: CASE EVENT DATE: 20180612
